FAERS Safety Report 24200852 (Version 1)
Quarter: 2024Q3

REPORT INFORMATION
  Report Type: Spontaneous
  Country: US (occurrence: None)
  Receive Date: 20240810
  Receipt Date: 20240810
  Transmission Date: 20241016
  Serious: Yes (Life-Threatening, Hospitalization, Disabling, Other)
  Sender: Public
  Company Number: None

PATIENT
  Age: 77 Year
  Sex: Female

DRUGS (1)
  1. CELLCEPT [Suspect]
     Active Substance: MYCOPHENOLATE MOFETIL
     Indication: Neoplasm malignant
     Dates: start: 20240730, end: 20240801

REACTIONS (5)
  - General symptom [None]
  - Cerebrovascular accident [None]
  - Aphasia [None]
  - Communication disorder [None]
  - Adverse drug reaction [None]

NARRATIVE: CASE EVENT DATE: 20240801
